FAERS Safety Report 8261701-0 (Version None)
Quarter: 2012Q1

REPORT INFORMATION
  Report Type: 
  Country: None (occurrence: None)
  Receive Date: 20120321
  Receipt Date: 20111103
  Transmission Date: 20120608
  Serious: Yes (Other)
  Sender: FDA-Public Use
  Company Number: 2011SP051859

PATIENT
  Age: 56 Year
  Sex: Male

DRUGS (3)
  1. RIBAVIRIN [Suspect]
     Indication: PRODUCT USED FOR UNKNOWN INDICATION
     Dosage: 600 MG;BID, 200 MG;QD
     Dates: start: 20111102
  2. RIBAVIRIN [Suspect]
     Indication: PRODUCT USED FOR UNKNOWN INDICATION
     Dosage: 600 MG;BID, 200 MG;QD
     Dates: end: 20111102
  3. PEG-INTRON [Suspect]
     Indication: HEPATITIS
     Dosage: 150 MCG;QW;SC
     Route: 058
     Dates: start: 20111001

REACTIONS (5)
  - DIZZINESS [None]
  - HAEMOGLOBIN DECREASED [None]
  - ORAL DISORDER [None]
  - THROMBOCYTOPENIA [None]
  - PYREXIA [None]
